FAERS Safety Report 22335916 (Version 2)
Quarter: 2023Q2

REPORT INFORMATION
  Report Type: Report from Study
  Country: US (occurrence: US)
  Receive Date: 20230518
  Receipt Date: 20230529
  Transmission Date: 20230721
  Serious: Yes (Death)
  Sender: FDA-Public Use
  Company Number: US-ABBVIE-4769406

PATIENT
  Sex: Female
  Weight: 68.038 kg

DRUGS (1)
  1. RINVOQ [Suspect]
     Active Substance: UPADACITINIB
     Indication: Rheumatoid arthritis
     Route: 048
     Dates: start: 20230101, end: 20230403

REACTIONS (7)
  - Cardio-respiratory arrest [Fatal]
  - Coronary artery disease [Fatal]
  - Cor pulmonale [Fatal]
  - Cardiomegaly [Unknown]
  - Palpitations [Recovered/Resolved]
  - Malaise [Recovered/Resolved]
  - Blood pressure increased [Recovered/Resolved]

NARRATIVE: CASE EVENT DATE: 20230101
